FAERS Safety Report 8389215-8 (Version None)
Quarter: 2012Q2

REPORT INFORMATION
  Report Type: 
  Country: None (occurrence: None)
  Receive Date: 20120528
  Receipt Date: 20120524
  Transmission Date: 20120825
  Serious: Yes (Life-Threatening, Other)
  Sender: FDA-Public Use
  Company Number: PHHY2012JP044861

PATIENT
  Age: 28 Year
  Sex: Female
  Weight: 42 kg

DRUGS (1)
  1. VOLTAREN [Suspect]
     Indication: PYREXIA
     Dosage: 25 MG, DAILY
     Route: 054
     Dates: start: 20120320

REACTIONS (5)
  - SPEECH DISORDER [None]
  - ALTERED STATE OF CONSCIOUSNESS [None]
  - SHOCK [None]
  - HYPOTHERMIA [None]
  - BLOOD PRESSURE DECREASED [None]
